FAERS Safety Report 16363017 (Version 1)
Quarter: 2019Q2

REPORT INFORMATION
  Report Type: Spontaneous
  Country: US (occurrence: US)
  Receive Date: 20190528
  Receipt Date: 20190528
  Transmission Date: 20190711
  Serious: No
  Sender: FDA-Public Use
  Company Number: US-BAYER-2019-099621

PATIENT
  Age: 63 Year
  Sex: Male
  Weight: 127 kg

DRUGS (11)
  1. MULTIVITAMINUM [Concomitant]
  2. ELIQUIS [Concomitant]
     Active Substance: APIXABAN
  3. LANTUS [Concomitant]
     Active Substance: INSULIN GLARGINE
  4. ACETYLSALICYLIC ACID (CARDIO) [Suspect]
     Active Substance: ASPIRIN
     Dosage: 1 DF
     Route: 048
  5. LOSARTAN. [Concomitant]
     Active Substance: LOSARTAN
  6. VICTOZA [Concomitant]
     Active Substance: LIRAGLUTIDE
  7. TIKOSYN [Concomitant]
     Active Substance: DOFETILIDE
  8. NOVOLOG [Concomitant]
     Active Substance: INSULIN ASPART
  9. ALPHA LIPOIC ACID [Concomitant]
     Active Substance: .ALPHA.-LIPOIC ACID
  10. METFORMIN [Concomitant]
     Active Substance: METFORMIN HYDROCHLORIDE
  11. ALEVE [Suspect]
     Active Substance: NAPROXEN SODIUM
     Indication: PAIN
     Dosage: 2 DF
     Route: 048
     Dates: end: 20190520

REACTIONS (3)
  - Expired product administered [Unknown]
  - Incorrect dose administered [Unknown]
  - Expired product administered [Unknown]

NARRATIVE: CASE EVENT DATE: 2018
